FAERS Safety Report 12682618 (Version 2)
Quarter: 2016Q3

REPORT INFORMATION
  Report Type: Spontaneous
  Country: FR (occurrence: FR)
  Receive Date: 20160825
  Receipt Date: 20160909
  Transmission Date: 20161109
  Serious: Yes (Hospitalization)
  Sender: FDA-Public Use
  Company Number: FR-ROCHE-1819624

PATIENT
  Age: 65 Year
  Sex: Female

DRUGS (20)
  1. LEVEMIR [Concomitant]
     Active Substance: INSULIN DETEMIR
  2. LEVOTHYROX [Concomitant]
     Active Substance: LEVOTHYROXINE
  3. MABTHERA [Suspect]
     Active Substance: RITUXIMAB
     Indication: B-CELL LYMPHOMA
     Route: 041
     Dates: start: 20160719, end: 20160719
  4. OXYCODONE [Suspect]
     Active Substance: OXYCODONE
     Indication: ANALGESIC THERAPY
     Route: 048
     Dates: start: 20160721, end: 20160722
  5. DIAMICRON [Concomitant]
     Active Substance: GLICLAZIDE
  6. KARDEGIC [Concomitant]
     Active Substance: ASPIRIN LYSINE
  7. PRIMPERAN [Concomitant]
     Active Substance: METOCLOPRAMIDE HYDROCHLORIDE
  8. LASILIX [Concomitant]
     Active Substance: FUROSEMIDE
  9. PRAVASTATIN. [Concomitant]
     Active Substance: PRAVASTATIN
  10. RAMIPRIL. [Concomitant]
     Active Substance: RAMIPRIL
  11. SOTALOL. [Concomitant]
     Active Substance: SOTALOL
  12. TARDYFERON (FRANCE) [Concomitant]
  13. IFOSFAMIDE. [Suspect]
     Active Substance: IFOSFAMIDE
     Indication: B-CELL LYMPHOMA
     Route: 041
     Dates: start: 20160721, end: 20160721
  14. METFORMINE [Concomitant]
     Active Substance: METFORMIN HYDROCHLORIDE
  15. OROZAMUDOL [Concomitant]
     Active Substance: TRAMADOL
  16. CARBOPLATINE [Suspect]
     Active Substance: CARBOPLATIN
     Indication: B-CELL LYMPHOMA
     Route: 041
     Dates: start: 20160720, end: 20160720
  17. GRANOCYTE [Concomitant]
     Active Substance: LENOGRASTIM
  18. ZELITREX [Concomitant]
     Active Substance: VALACYCLOVIR HYDROCHLORIDE
  19. EMEND [Suspect]
     Active Substance: APREPITANT
     Indication: PROPHYLAXIS OF NAUSEA AND VOMITING
     Route: 048
     Dates: start: 20160719, end: 20160721
  20. DEXAMETHASONE. [Concomitant]
     Active Substance: DEXAMETHASONE

REACTIONS (1)
  - Encephalopathy [Recovered/Resolved]

NARRATIVE: CASE EVENT DATE: 20160721
